FAERS Safety Report 13613135 (Version 1)
Quarter: 2017Q2

REPORT INFORMATION
  Report Type: Spontaneous
  Country: US (occurrence: US)
  Receive Date: 20170605
  Receipt Date: 20170605
  Transmission Date: 20170830
  Serious: Yes (Hospitalization, Disabling)
  Sender: FDA-Public Use
  Company Number: US-BAYER-2017-100920

PATIENT
  Age: 11 Year
  Sex: Female
  Weight: 58 kg

DRUGS (2)
  1. COPPERTONE SPORT SPF 30 SPRAY [Suspect]
     Active Substance: AVOBENZONE\HOMOSALATE\OCTISALATE\OCTOCRYLENE\OXYBENZONE
     Indication: THERAPEUTIC SKIN CARE TOPICAL
     Dosage: ONE APPLICATION DOSE
     Route: 061
     Dates: start: 20170521, end: 20170521
  2. CONCERTA [Concomitant]
     Active Substance: METHYLPHENIDATE HYDROCHLORIDE
     Dosage: UNK

REACTIONS (3)
  - Burns second degree [Not Recovered/Not Resolved]
  - Blister [Unknown]
  - Chemical burn [Not Recovered/Not Resolved]
